FAERS Safety Report 7238729-2 (Version None)
Quarter: 2011Q1

REPORT INFORMATION
  Report Type: 
  Country: None (occurrence: None)
  Receive Date: 20110113
  Receipt Date: 20110104
  Transmission Date: 20110831
  Serious: Yes (Hospitalization, Disabling)
  Sender: FDA-Public Use
  Company Number: 2010SP050517

PATIENT
  Age: 28 Year
  Sex: Female
  Weight: 47.6277 kg

DRUGS (6)
  1. UNSPECIFIED STEROIDS [Suspect]
     Indication: PRODUCT USED FOR UNKNOWN INDICATION
  2. NUVARING [Suspect]
     Indication: CONTRACEPTION
     Dates: start: 20031001, end: 20070401
  3. PREDNISONE [Concomitant]
  4. COLAZAL [Concomitant]
  5. COUMADIN [Suspect]
     Indication: THROMBOSIS
  6. UNSPECIFIED MEDICINES [Suspect]
     Indication: PRODUCT USED FOR UNKNOWN INDICATION

REACTIONS (14)
  - ALOPECIA [None]
  - INSOMNIA [None]
  - DEEP VEIN THROMBOSIS [None]
  - VULVOVAGINAL CANDIDIASIS [None]
  - INCREASED TENDENCY TO BRUISE [None]
  - HAEMORRHOIDS [None]
  - RENAL VEIN THROMBOSIS [None]
  - COLITIS ULCERATIVE [None]
  - LOWER GASTROINTESTINAL HAEMORRHAGE [None]
  - CANDIDIASIS [None]
  - ANAEMIA [None]
  - PSEUDOPOLYP [None]
  - IMPAIRED WORK ABILITY [None]
  - ANXIETY [None]
